FAERS Safety Report 5678575-4 (Version None)
Quarter: 2008Q1

REPORT INFORMATION
  Report Type: 
  Country: None (occurrence: None)
  Receive Date: 20080325
  Receipt Date: 20080319
  Transmission Date: 20080703
  Serious: Yes (Death, Other)
  Sender: FDA-Public Use
  Company Number: PHEH2006US01240

PATIENT
  Age: 49 Year
  Sex: Female
  Weight: 79.818 kg

DRUGS (10)
  1. AREDIA [Suspect]
     Indication: METASTASES TO BONE
     Dosage: UNK,UNK
     Dates: end: 20020501
  2. ZOMETA [Suspect]
     Indication: METASTASES TO BONE
     Dosage: 4 MG MONTHLY
     Route: 042
     Dates: start: 20020501
  3. ZOMETA [Suspect]
     Dosage: UNK, QMO
     Dates: start: 20020514
  4. XELODA [Concomitant]
     Indication: BREAST CANCER
  5. TAMOXIFEN CITRATE [Concomitant]
     Dosage: 20 MG, QD
  6. ARIMIDEX [Concomitant]
  7. ADRIAMYCIN PFS [Concomitant]
     Dates: start: 19980101
  8. TAXOTERE [Concomitant]
     Dates: start: 19980101
  9. PREDNISONE TAB [Concomitant]
  10. VITAMIN CAP [Concomitant]

REACTIONS (50)
  - ABSCESS [None]
  - BLADDER CATHETERISATION [None]
  - BLOOD CREATININE INCREASED [None]
  - BLOOD THYROID STIMULATING HORMONE INCREASED [None]
  - BONE DEBRIDEMENT [None]
  - BREAST CANCER RECURRENT [None]
  - BREAST CANCER STAGE IV [None]
  - BREATH ODOUR [None]
  - CARDIAC FAILURE CONGESTIVE [None]
  - CYST [None]
  - CYSTOSCOPY [None]
  - DEATH [None]
  - DEBRIDEMENT [None]
  - DEEP VEIN THROMBOSIS [None]
  - DIALYSIS [None]
  - DYSPNOEA [None]
  - ERYTHEMA [None]
  - GINGIVAL DISORDER [None]
  - HAEMODIALYSIS [None]
  - HYDRONEPHROSIS [None]
  - HYPOAESTHESIA [None]
  - HYPOAESTHESIA ORAL [None]
  - INFECTION [None]
  - INFLAMMATION [None]
  - KIDNEY SMALL [None]
  - LOOSE TOOTH [None]
  - METASTASES TO BONE MARROW [None]
  - METASTATIC NEOPLASM [None]
  - MUCOSAL EROSION [None]
  - OEDEMA [None]
  - ORAL INTAKE REDUCED [None]
  - OSTEOMYELITIS [None]
  - OSTEONECROSIS [None]
  - PAIN [None]
  - POLYP [None]
  - PROSTHESIS IMPLANTATION [None]
  - PYELOGRAM RETROGRADE [None]
  - RADIATION INJURY [None]
  - RENAL ATROPHY [None]
  - RENAL FAILURE [None]
  - RENAL FAILURE ACUTE [None]
  - SINUS DISORDER [None]
  - SINUS POLYP [None]
  - SWELLING [None]
  - SWELLING FACE [None]
  - TENDERNESS [None]
  - URETHRAL OBSTRUCTION [None]
  - URETHRAL STENT INSERTION [None]
  - WEIGHT DECREASED [None]
  - WOUND SECRETION [None]
